FAERS Safety Report 6704179-8 (Version None)
Quarter: 2010Q2

REPORT INFORMATION
  Report Type: 
  Country: None (occurrence: None)
  Receive Date: 20100423
  Receipt Date: 20100219
  Transmission Date: 20101027
  Serious: No
  Sender: FDA-Public Use
  Company Number: ALL1-2010-01189

PATIENT
  Age: 16 Year
  Sex: Male

DRUGS (1)
  1. VYVANSE [Suspect]
     Indication: DRUG USE FOR UNKNOWN INDICATION
     Dosage: MG, 1X/DAY:QD, ORAL,  30 MG, 1X/DAY:QD, ORAL
     Route: 048
     Dates: end: 20100101

REACTIONS (4)
  - DERMATILLOMANIA [None]
  - DISTURBANCE IN ATTENTION [None]
  - EMOTIONAL DISTRESS [None]
  - OFF LABEL USE [None]
